FAERS Safety Report 25072471 (Version 1)
Quarter: 2025Q1

REPORT INFORMATION
  Report Type: Other
  Country: GE (occurrence: GE)
  Receive Date: 20250313
  Receipt Date: 20250313
  Transmission Date: 20250409
  Serious: Yes (Hospitalization)
  Sender: DEXCEL LTD.
  Company Number: GE-DEXPHARM-2025-1253

PATIENT
  Age: 58 Year
  Sex: Male

DRUGS (3)
  1. ESOMEPRAZOLE [Suspect]
     Active Substance: ESOMEPRAZOLE
     Indication: Barrett^s oesophagus
  2. RABEPRAZOLE [Concomitant]
     Active Substance: RABEPRAZOLE
  3. RABEPRAZOLE [Concomitant]
     Active Substance: RABEPRAZOLE

REACTIONS (1)
  - Anaphylactic reaction [Unknown]
